FAERS Safety Report 8921829 (Version 1)
Quarter: 2012Q4

REPORT INFORMATION
  Report Type: 
  Country: US (occurrence: US)
  Receive Date: 20121121
  Receipt Date: 20121121
  Transmission Date: 20130627
  Serious: No
  Sender: FDA-Public Use
  Company Number: US-ASTRAZENECA-2012SE85078

PATIENT
  Sex: Female

DRUGS (3)
  1. SEROQUEL XR [Suspect]
     Route: 048
  2. LAMICTAL [Concomitant]
  3. CELEXA [Concomitant]

REACTIONS (2)
  - Withdrawal syndrome [Not Recovered/Not Resolved]
  - Drug dose omission [Not Recovered/Not Resolved]
